FAERS Safety Report 8709977 (Version 2)
Quarter: 2013Q4

REPORT INFORMATION
  Report Type: Spontaneous
  Country: US (occurrence: US)
  Receive Date: 20120806
  Receipt Date: 20131105
  Transmission Date: 20140711
  Serious: Yes (Other)
  Sender: FDA-Public Use
  Company Number: US-009507513-1207USA011251

PATIENT
  Age: 85 Year
  Sex: Female

DRUGS (4)
  1. ZOCOR [Suspect]
  2. COZAAR [Suspect]
  3. ATACAND [Suspect]
     Route: 048
  4. CRESTOR [Suspect]
     Dosage: UNK
     Route: 048

REACTIONS (9)
  - Eyelid ptosis [Unknown]
  - Photophobia [Unknown]
  - Visual impairment [Unknown]
  - Diabetes mellitus [Unknown]
  - Fatigue [Unknown]
  - Muscle spasms [Unknown]
  - Urine abnormality [Unknown]
  - Headache [Unknown]
  - Dizziness [Unknown]
